FAERS Safety Report 6706081-4 (Version None)
Quarter: 2010Q2

REPORT INFORMATION
  Report Type: 
  Country: None (occurrence: None)
  Receive Date: 20100503
  Receipt Date: 20100427
  Transmission Date: 20101027
  Serious: Yes (Hospitalization)
  Sender: FDA-Public Use
  Company Number: US-ASTRAZENECA-2010SE18798

PATIENT
  Age: 84 Year
  Sex: Male

DRUGS (5)
  1. SEROQUEL [Suspect]
     Dosage: HALF IN AM HALF IN NOON
     Route: 048
  2. ASPIRIN [Concomitant]
  3. ARICEPT [Concomitant]
  4. SIMVASTATIN [Concomitant]
     Dosage: 40 MGS TWO DAILY
  5. RANITIDINE [Concomitant]

REACTIONS (6)
  - BONE MARROW FAILURE [None]
  - DIZZINESS [None]
  - DYSPNOEA [None]
  - FATIGUE [None]
  - PANCYTOPENIA [None]
  - VITAMIN B12 DECREASED [None]
